FAERS Safety Report 7575351-2 (Version None)
Quarter: 2011Q2

REPORT INFORMATION
  Report Type: 
  Country: None (occurrence: None)
  Receive Date: 20110627
  Receipt Date: 20110615
  Transmission Date: 20111010
  Serious: Yes (Other)
  Sender: FDA-Public Use
  Company Number: JP-ASTRAZENECA-2011SE14835

PATIENT
  Age: 15 Year
  Sex: Male

DRUGS (9)
  1. OMEPRAZOLE [Suspect]
     Route: 048
     Dates: start: 20101231, end: 20110112
  2. NEO-MINOPHAGEN C [Concomitant]
     Route: 042
     Dates: start: 20101231, end: 20110112
  3. MEROPENEM [Suspect]
     Indication: PNEUMONIA
     Route: 042
     Dates: start: 20110105, end: 20110117
  4. FUNGUARD [Suspect]
     Indication: PNEUMONIA
     Dosage: 300 MG
     Route: 042
     Dates: start: 20110106, end: 20110113
  5. TEICOPLANIN [Concomitant]
     Indication: PNEUMONIA
     Dates: start: 20110105, end: 20110112
  6. MEROPENEM [Suspect]
     Indication: PANCREATITIS ACUTE
     Route: 042
     Dates: start: 20110105, end: 20110117
  7. HUMULIN R [Concomitant]
     Dates: start: 20110101, end: 20110120
  8. MIRACLID [Concomitant]
     Route: 042
     Dates: start: 20110101, end: 20110112
  9. FUTHAN [Concomitant]
     Dates: start: 20110107, end: 20110117

REACTIONS (1)
  - MYOCLONUS [None]
